FAERS Safety Report 10076134 (Version 3)
Quarter: 2014Q3

REPORT INFORMATION
  Report Type: Spontaneous
  Country: US (occurrence: US)
  Receive Date: 20140414
  Receipt Date: 20140724
  Transmission Date: 20150326
  Serious: Yes (Hospitalization)
  Sender: FDA-Public Use
  Company Number: US-BAYER-2014-054185

PATIENT
  Age: 26 Year
  Sex: Female
  Weight: 76 kg

DRUGS (1)
  1. MIRENA [Suspect]
     Active Substance: LEVONORGESTREL
     Indication: CONTRACEPTION
     Dosage: 20 MCG/24HR, CONT
     Route: 015
     Dates: start: 20090210, end: 20120315

REACTIONS (9)
  - Device issue [None]
  - Injury [None]
  - Anxiety [None]
  - Medical device discomfort [None]
  - Uterine perforation [None]
  - Infertility female [None]
  - Medical device pain [None]
  - Stress [None]
  - Procedural pain [None]

NARRATIVE: CASE EVENT DATE: 2011
